FAERS Safety Report 13479748 (Version 1)
Quarter: 2017Q2

REPORT INFORMATION
  Report Type: Spontaneous
  Country: FR (occurrence: FR)
  Receive Date: 20170425
  Receipt Date: 20170425
  Transmission Date: 20170830
  Serious: Yes (Death, Life-Threatening, Other)
  Sender: FDA-Public Use
  Company Number: FR-TELIGENT, INC-IGIL20170160

PATIENT
  Age: 74 Year
  Sex: Female

DRUGS (2)
  1. ZANTAC [Suspect]
     Active Substance: RANITIDINE HYDROCHLORIDE
     Indication: PREMEDICATION
     Dosage: 100 MG CYCLICALLY
     Route: 042
     Dates: start: 20161226, end: 20170406
  2. ZOPHREN [Suspect]
     Active Substance: ONDANSETRON
     Indication: PREMEDICATION
     Dosage: 8 MG CYCLICALLY
     Route: 042
     Dates: start: 20161226, end: 20170406

REACTIONS (5)
  - Cardio-respiratory arrest [Recovered/Resolved]
  - Malaise [Unknown]
  - Anaphylactic shock [Fatal]
  - Disseminated intravascular coagulation [Unknown]
  - Haemolysis [Unknown]

NARRATIVE: CASE EVENT DATE: 20161226
